FAERS Safety Report 21902830 (Version 1)
Quarter: 2023Q1

REPORT INFORMATION
  Report Type: Spontaneous
  Country: US (occurrence: None)
  Receive Date: 20230123
  Receipt Date: 20230123
  Transmission Date: 20230418
  Serious: Yes (Hospitalization)
  Sender: FDA-Public Use
  Company Number: None

PATIENT
  Sex: Female

DRUGS (1)
  1. REBIF [Suspect]
     Active Substance: INTERFERON BETA-1A
     Indication: Multiple sclerosis
     Dosage: OTHER STRENGTH : 11MCG/0.5ML;?FREQUENCY : 3 TIMES A WEEK;?
     Route: 058

REACTIONS (1)
  - Nephrolithiasis [None]
